FAERS Safety Report 7201721-8 (Version None)
Quarter: 2010Q4

REPORT INFORMATION
  Report Type: 
  Country: None (occurrence: None)
  Receive Date: 20101216
  Receipt Date: 20101206
  Transmission Date: 20110411
  Serious: Yes (Other)
  Sender: FDA-Public Use
  Company Number: ALA_01183_2010

PATIENT
  Sex: Male

DRUGS (1)
  1. REGLAN [Suspect]
     Indication: PRODUCT USED FOR UNKNOWN INDICATION
     Dosage: (DF ORAL)
     Route: 048
     Dates: start: 20050101, end: 20090401

REACTIONS (4)
  - ECONOMIC PROBLEM [None]
  - EMOTIONAL DISORDER [None]
  - RESTLESS LEGS SYNDROME [None]
  - TARDIVE DYSKINESIA [None]
